FAERS Safety Report 5928835-4 (Version None)
Quarter: 2008Q4

REPORT INFORMATION
  Report Type: 
  Country: None (occurrence: None)
  Receive Date: 20081021
  Receipt Date: 20081008
  Transmission Date: 20090506
  Serious: Yes (Hospitalization, Disabling, Other)
  Sender: FDA-Public Use
  Company Number: 20283

PATIENT
  Age: 47 Year
  Sex: Female

DRUGS (9)
  1. NIPENT [Suspect]
     Indication: GRAFT VERSUS HOST DISEASE
     Dosage: 7.2 MG FORTNIGHTLY IV
     Route: 042
  2. MYCOPHENOLATE MOFETIL [Concomitant]
  3. VALACYCLOVIR HCL [Concomitant]
  4. VORICONAZOLE [Concomitant]
  5. PENICILINA V [Concomitant]
  6. AZITHROMYCIN [Concomitant]
  7. ALENDRONATE SODIUM [Concomitant]
  8. LANSOPRAZOLE [Concomitant]
  9. PREDNISOLONE [Concomitant]

REACTIONS (6)
  - BLINDNESS [None]
  - FATIGUE [None]
  - LETHARGY [None]
  - NERVOUS SYSTEM DISORDER [None]
  - OPTIC NEUROPATHY [None]
  - SENSORY DISTURBANCE [None]
